FAERS Safety Report 7911164-7 (Version None)
Quarter: 2011Q4

REPORT INFORMATION
  Report Type: 
  Country: None (occurrence: None)
  Receive Date: 20111109
  Receipt Date: 20111021
  Transmission Date: 20120403
  Serious: Yes (Death, Hospitalization)
  Sender: FDA-Public Use
  Company Number: IBUP20110008

PATIENT
  Age: 27 Year
  Sex: Female

DRUGS (4)
  1. FERROUS SULFATE TAB [Suspect]
     Indication: OVERDOSE
     Dosage: 103 MG/KG, ORAL
     Route: 048
  2. CO-DYDRAMOL (PARACETAMOL, DIHYDROCODINE BITARTRATE) (148 MILLIGRAM (S) [Suspect]
     Indication: OVERDOSE
     Dosage: 8 GM, ORAL
     Route: 048
  3. IBUPROFEN [Suspect]
     Indication: OVERDOSE
     Dosage: 7000 MG, ORAL
     Route: 048
  4. DICLOFENAC (DICLOFENAC) (2800 MILLIGRAM, TABLETS) [Suspect]
     Indication: OVERDOSE
     Dosage: 2800 MG, ORAL
     Route: 048

REACTIONS (22)
  - BLOOD CALCIUM DECREASED [None]
  - BLOOD CREATININE INCREASED [None]
  - ALANINE AMINOTRANSFERASE INCREASED [None]
  - COAGULOPATHY [None]
  - INTERNATIONAL NORMALISED RATIO INCREASED [None]
  - GENERAL PHYSICAL HEALTH DETERIORATION [None]
  - ELECTROLYTE IMBALANCE [None]
  - NAUSEA [None]
  - VOMITING [None]
  - BODY TEMPERATURE DECREASED [None]
  - HYPOTENSION [None]
  - METABOLIC ACIDOSIS [None]
  - ACIDOSIS [None]
  - BLOOD PHOSPHORUS DECREASED [None]
  - HEPATOTOXICITY [None]
  - BLOOD BILIRUBIN INCREASED [None]
  - MULTI-ORGAN FAILURE [None]
  - MULTIPLE DRUG OVERDOSE [None]
  - HAEMATEMESIS [None]
  - SINUS TACHYCARDIA [None]
  - ANAEMIA [None]
  - HYPOGLYCAEMIA [None]
